FAERS Safety Report 9456784 (Version 2)
Quarter: 2013Q3

REPORT INFORMATION
  Report Type: Spontaneous
  Country: US (occurrence: US)
  Receive Date: 20130813
  Receipt Date: 20130930
  Transmission Date: 20140515
  Serious: Yes (Other)
  Sender: FDA-Public Use
  Company Number: US-009507513-1308USA004889

PATIENT
  Sex: 0

DRUGS (1)
  1. FUROSEMIDE [Suspect]
     Route: 048

REACTIONS (1)
  - Renal failure acute [Unknown]
